FAERS Safety Report 19821465 (Version 2)
Quarter: 2021Q3

REPORT INFORMATION
  Report Type: Other
  Country: US (occurrence: US)
  Receive Date: 20210913
  Receipt Date: 20210924
  Transmission Date: 20211014
  Serious: Yes (Other)
  Sender: FDA-Public Use
  Company Number: US-ROCHE-2908133

PATIENT
  Age: 16 Year
  Sex: Male

DRUGS (1)
  1. EMICIZUMAB. [Suspect]
     Active Substance: EMICIZUMAB
     Indication: FACTOR VIII DEFICIENCY
     Route: 058

REACTIONS (2)
  - Thrombophlebitis superficial [Unknown]
  - Venous thrombosis limb [Unknown]
